FAERS Safety Report 11170861 (Version 2)
Quarter: 2015Q2

REPORT INFORMATION
  Report Type: Spontaneous
  Country: US (occurrence: US)
  Receive Date: 20150608
  Receipt Date: 20150630
  Transmission Date: 20150821
  Serious: Yes (Hospitalization)
  Sender: FDA-Public Use
  Company Number: US-UNITED THERAPEUTICS-UNT-2015-006526

PATIENT
  Sex: Female
  Weight: 82 kg

DRUGS (1)
  1. REMODULIN [Suspect]
     Active Substance: TREPROSTINIL
     Indication: PULMONARY ARTERIAL HYPERTENSION
     Dosage: 0.0043 ?G/KG, Q48H
     Route: 041
     Dates: start: 20120712

REACTIONS (2)
  - Medical device site oedema [Unknown]
  - Device related infection [Unknown]

NARRATIVE: CASE EVENT DATE: 20150528
